FAERS Safety Report 13413882 (Version 2)
Quarter: 2017Q2

REPORT INFORMATION
  Report Type: Spontaneous
  Country: MX (occurrence: MX)
  Receive Date: 20170407
  Receipt Date: 20170602
  Transmission Date: 20170830
  Serious: Yes (Death, Other)
  Sender: FDA-Public Use
  Company Number: MX-TEVA-755653ROM

PATIENT
  Age: 9 Year
  Sex: Female

DRUGS (5)
  1. EPIRUBICIN [Suspect]
     Active Substance: EPIRUBICIN
     Indication: HODGKIN^S DISEASE
     Dosage: 48 MG/M2/DOSE
     Route: 065
     Dates: end: 20140204
  2. DACARBAZINE. [Concomitant]
     Active Substance: DACARBAZINE
     Indication: HODGKIN^S DISEASE
     Route: 065
  3. VINBLASTINE [Concomitant]
     Active Substance: VINBLASTINE
     Indication: HODGKIN^S DISEASE
     Dosage: 6 MG/M2/DOSE
     Route: 065
     Dates: end: 20140204
  4. VINBLASTINE [Concomitant]
     Active Substance: VINBLASTINE
     Route: 065
     Dates: end: 20140204
  5. BLEOMYCIN [Suspect]
     Active Substance: BLEOMYCIN SULFATE
     Indication: HODGKIN^S DISEASE
     Dosage: 10.8 MG/M2/DOSE
     Route: 065
     Dates: end: 20140204

REACTIONS (1)
  - Congestive cardiomyopathy [Fatal]
